FAERS Safety Report 5898277-9 (Version None)
Quarter: 2008Q3

REPORT INFORMATION
  Report Type: 
  Country: None (occurrence: None)
  Receive Date: 20080925
  Receipt Date: 20070815
  Transmission Date: 20090109
  Serious: No
  Sender: FDA-Public Use
  Company Number: A0670643A

PATIENT
  Age: 50 Year
  Sex: Female

DRUGS (2)
  1. WELLBUTRIN XL [Suspect]
     Indication: MENOPAUSAL DEPRESSION
     Dosage: 150MG PER DAY
     Route: 048
  2. HORMONE PATCH [Concomitant]

REACTIONS (2)
  - INSOMNIA [None]
  - RASH ERYTHEMATOUS [None]
